FAERS Safety Report 12343127 (Version 1)
Quarter: 2016Q2

REPORT INFORMATION
  Report Type: Spontaneous
  Country: US (occurrence: US)
  Receive Date: 20160506
  Receipt Date: 20160506
  Transmission Date: 20160815
  Serious: Yes (Hospitalization, Disabling)
  Sender: FDA-Public Use
  Company Number: US-ENDO PHARMACEUTICALS INC.-2015-004902

PATIENT
  Age: 51 Year
  Sex: Male
  Weight: 99.88 kg

DRUGS (1)
  1. TESTIM [Suspect]
     Active Substance: TESTOSTERONE
     Indication: ANDROGEN REPLACEMENT THERAPY
     Route: 062
     Dates: start: 2011, end: 2014

REACTIONS (7)
  - Splenic rupture [Recovered/Resolved]
  - Neck pain [Unknown]
  - Hypoaesthesia [Recovered/Resolved]
  - Cerebrovascular accident [Not Recovered/Not Resolved]
  - Pulmonary embolism [Not Recovered/Not Resolved]
  - Hemiparesis [Unknown]
  - Deep vein thrombosis [Not Recovered/Not Resolved]

NARRATIVE: CASE EVENT DATE: 20121227
